FAERS Safety Report 5090693-0 (Version None)
Quarter: 2006Q3

REPORT INFORMATION
  Report Type: 
  Country: None (occurrence: None)
  Receive Date: 20060823
  Receipt Date: 20060814
  Transmission Date: 20061208
  Serious: Yes (Other)
  Sender: FDA-Public Use
  Company Number: 2006-BP-09504RO

PATIENT
  Age: 20 Year
  Sex: Male

DRUGS (2)
  1. COCAINE (COCAINE) [Suspect]
     Indication: DRUG ABUSER
  2. OPIOIDS (OPIOIDS) [Suspect]
     Indication: DRUG ABUSER

REACTIONS (7)
  - ABNORMAL BEHAVIOUR [None]
  - ALCOHOL USE [None]
  - DRUG ABUSER [None]
  - DRUG DEPENDENCE [None]
  - DRUG WITHDRAWAL SYNDROME [None]
  - IMPRISONMENT [None]
  - LEGAL PROBLEM [None]
